FAERS Safety Report 15553528 (Version 1)
Quarter: 2018Q4

REPORT INFORMATION
  Report Type: Report from Study
  Country: DK (occurrence: DK)
  Receive Date: 20181026
  Receipt Date: 20181026
  Transmission Date: 20190205
  Serious: Yes (Death)
  Sender: FDA-Public Use
  Company Number: DK-ROCHE-2174891

PATIENT
  Age: 66 Year
  Sex: Female

DRUGS (2)
  1. DASABUVIR SODIUM MONOHYDRATE/OMBITASVIR/PARITAPREVIR/RITONAVIR [Suspect]
     Active Substance: DASABUVIR\OMBITASVIR\PARITAPREVIR\RITONAVIR
     Indication: CHRONIC HEPATITIS C
     Dosage: DISCONTINUED ON DAY 17
     Route: 065
  2. RIBAVIRIN. [Suspect]
     Active Substance: RIBAVIRIN
     Indication: CHRONIC HEPATITIS C
     Dosage: DISCONTINUED ON DAY 8
     Route: 048

REACTIONS (2)
  - Acute hepatic failure [Fatal]
  - Hepatitis cholestatic [Fatal]
